FAERS Safety Report 6239568-1 (Version None)
Quarter: 2009Q2

REPORT INFORMATION
  Report Type: 
  Country: None (occurrence: None)
  Receive Date: 20090622
  Receipt Date: 20090612
  Transmission Date: 20091009
  Serious: Yes (Hospitalization)
  Sender: FDA-Public Use
  Company Number: AR-AMGEN-US352142

PATIENT
  Sex: Female
  Weight: 58 kg

DRUGS (3)
  1. ENBREL [Suspect]
     Indication: RHEUMATOID ARTHRITIS
     Route: 058
     Dates: start: 20060303, end: 20070101
  2. METHOTREXATE [Concomitant]
  3. DELTISONA ^ROUSSEL^ [Concomitant]

REACTIONS (1)
  - GASTRIC ULCER [None]
